FAERS Safety Report 4322569-8 (Version None)
Quarter: 2004Q1

REPORT INFORMATION
  Report Type: 
  Country: None (occurrence: None)
  Receive Date: 20040319
  Receipt Date: 20040308
  Transmission Date: 20041129
  Serious: Yes (Other)
  Sender: FDA-Public Use
  Company Number: CIP04000491

PATIENT
  Age: 57 Year
  Sex: Female

DRUGS (1)
  1. ACTONEL [Suspect]
     Indication: OSTEOPOROSIS
     Dosage: 35 MG ONCE WEEKLY, ORAL
     Route: 048
     Dates: start: 20030613, end: 20031202

REACTIONS (8)
  - AURA [None]
  - HEADACHE [None]
  - MIGRAINE [None]
  - MYALGIA [None]
  - NAUSEA [None]
  - PHOTOPSIA [None]
  - VISUAL DISTURBANCE [None]
  - VOMITING [None]
